FAERS Safety Report 5869581-5 (Version None)
Quarter: 2008Q3

REPORT INFORMATION
  Report Type: 
  Country: None (occurrence: None)
  Receive Date: 20080904
  Receipt Date: 20080827
  Transmission Date: 20090109
  Serious: Yes (Hospitalization)
  Sender: FDA-Public Use
  Company Number: US-AMGEN-QUU302683

PATIENT
  Sex: Female

DRUGS (6)
  1. ENBREL [Suspect]
     Indication: JUVENILE ARTHRITIS
     Route: 058
     Dates: start: 20000101, end: 20020101
  2. FOSAMAX [Concomitant]
  3. METHOTREXATE SODIUM [Concomitant]
  4. RELAFEN [Concomitant]
  5. FOLIC ACID [Concomitant]
  6. CYTOTEC [Concomitant]

REACTIONS (14)
  - ARTHROPOD BITE [None]
  - FATIGUE [None]
  - FOOD POISONING [None]
  - HAND DEFORMITY [None]
  - JOINT DISLOCATION [None]
  - JOINT EFFUSION [None]
  - NASOPHARYNGITIS [None]
  - PERIARTHRITIS [None]
  - RHEUMATOID ARTHRITIS [None]
  - SJOGREN'S SYNDROME [None]
  - SMALL INTESTINAL OBSTRUCTION [None]
  - TUBO-OVARIAN ABSCESS [None]
  - UMBILICAL HERNIA [None]
  - UTERINE LEIOMYOMA [None]
